FAERS Safety Report 11384457 (Version 1)
Quarter: 2015Q3

REPORT INFORMATION
  Report Type: Spontaneous
  Country: US (occurrence: US)
  Receive Date: 20150811
  Receipt Date: 20150811
  Transmission Date: 20151125
  Serious: No
  Sender: FDA-Public Use
  Company Number: US-ELI_LILLY_AND_COMPANY-US201102004770

PATIENT
  Sex: Male

DRUGS (4)
  1. CIALIS [Suspect]
     Active Substance: TADALAFIL
     Indication: ERECTILE DYSFUNCTION
     Dosage: 20 MG, AS NEEDED
  2. GABAPEN [Concomitant]
     Active Substance: GABAPENTIN
  3. LISINOPRIL                              /USA/ [Concomitant]
     Active Substance: LISINOPRIL
  4. VARDENAFIL [Concomitant]
     Active Substance: VARDENAFIL
     Dosage: 10 MG, UNK

REACTIONS (3)
  - Drug ineffective [Unknown]
  - Wrong technique in product usage process [Unknown]
  - Anxiety [Unknown]
